FAERS Safety Report 6370824-2 (Version None)
Quarter: 2009Q3

REPORT INFORMATION
  Report Type: 
  Country: None (occurrence: None)
  Receive Date: 20090923
  Receipt Date: 20070702
  Transmission Date: 20100115
  Serious: Yes (Hospitalization)
  Sender: FDA-Public Use
  Company Number: US-ASTRAZENECA-2006UW24708

PATIENT
  Age: 32 Year
  Sex: Male
  Weight: 104.8 kg

DRUGS (32)
  1. SEROQUEL [Suspect]
     Indication: MENTAL DISORDER
     Dosage: 600 MG
     Route: 048
     Dates: start: 19980101
  2. SEROQUEL [Suspect]
     Dosage: 100-300 MG
     Route: 048
     Dates: start: 20030729
  3. HALDOL [Concomitant]
     Dates: start: 19980101
  4. RISPERDAL [Concomitant]
     Dates: start: 19980101
  5. THORAZINE [Concomitant]
     Dates: start: 19980101
  6. ZYPREXA [Concomitant]
     Dates: start: 19980101
  7. METFORMIN HCL [Concomitant]
  8. IBUPROFEN [Concomitant]
  9. LEXAPRO [Concomitant]
  10. ASPIRIN [Concomitant]
  11. CRESTOR [Concomitant]
  12. ENALAPRIL MALEATE [Concomitant]
  13. LIPITOR [Concomitant]
  14. ZITHROMAX [Concomitant]
  15. Q-TUSSIN DM [Concomitant]
  16. CELEXA [Concomitant]
  17. FLUOCINONIDE [Concomitant]
  18. LOVASTATIN [Concomitant]
  19. LEVITRA [Concomitant]
  20. ZOCOR [Concomitant]
  21. PROPRANOLOL [Concomitant]
  22. DEPAKOTE [Concomitant]
  23. BENZTROPINE MESYLATE [Concomitant]
  24. GABAPENTIN [Concomitant]
  25. LISINOPRIL [Concomitant]
  26. FLUZONE [Concomitant]
  27. GLYBURIDE [Concomitant]
  28. OMEPRAZOLE [Concomitant]
  29. FLAGYL [Concomitant]
  30. BACTRIM [Concomitant]
  31. NEOMYCIN [Concomitant]
  32. TAGAMET [Concomitant]

REACTIONS (3)
  - BLOOD CHOLESTEROL INCREASED [None]
  - EYE DISORDER [None]
  - TYPE 2 DIABETES MELLITUS [None]
